FAERS Safety Report 5494930-X (Version None)
Quarter: 2007Q4

REPORT INFORMATION
  Report Type: 
  Country: None (occurrence: None)
  Receive Date: 20071024
  Receipt Date: 20071018
  Transmission Date: 20080405
  Serious: No
  Sender: FDA-Public Use
  Company Number: A0683325A

PATIENT
  Age: 48 Year
  Sex: Female

DRUGS (11)
  1. LAMICTAL [Suspect]
     Indication: BIPOLAR DISORDER
     Route: 048
     Dates: start: 20060901
  2. HYDROXYZINE [Suspect]
     Indication: SLEEP DISORDER
     Route: 048
     Dates: start: 20061001, end: 20061201
  3. PREMPRO [Suspect]
     Route: 048
  4. AMBIEN [Suspect]
     Indication: SLEEP DISORDER
  5. BENADRYL [Suspect]
     Indication: SLEEP DISORDER
     Route: 048
     Dates: start: 20070101
  6. TRAZODONE HCL [Suspect]
     Indication: SLEEP DISORDER
     Dosage: 150MG PER DAY
     Dates: end: 20061001
  7. TRAZODONE HCL [Suspect]
     Route: 048
     Dates: start: 20061201
  8. DEPAKOTE ER [Concomitant]
     Indication: BIPOLAR DISORDER
     Dosage: 500MG AT NIGHT
     Route: 048
     Dates: end: 20060901
  9. THYROID TAB [Concomitant]
     Route: 048
  10. CALCIUM [Concomitant]
  11. GLUCOSAMINE [Concomitant]

REACTIONS (12)
  - AMNESIA [None]
  - CLUMSINESS [None]
  - CONFUSIONAL STATE [None]
  - DIZZINESS [None]
  - DRUG INEFFECTIVE [None]
  - DRUG INTERACTION [None]
  - IRRITABILITY [None]
  - LOSS OF EMPLOYMENT [None]
  - MUSCULAR WEAKNESS [None]
  - SELF-MEDICATION [None]
  - TREATMENT NONCOMPLIANCE [None]
  - TREMOR [None]
